FAERS Safety Report 8839414 (Version 1)
Quarter: 2012Q4

REPORT INFORMATION
  Report Type: Spontaneous
  Country: US (occurrence: None)
  Receive Date: 20121012
  Receipt Date: 20121012
  Transmission Date: 20130627
  Serious: Yes (Hospitalization)
  Sender: FDA-Public Use
  Company Number: None

PATIENT
  Age: 27 Year
  Sex: Female
  Weight: 189.15 kg

DRUGS (2)
  1. LOESTRIN [Suspect]
     Indication: BIRTH CONTROL
     Route: 048
  2. MIRENA [Suspect]
     Indication: BIRTH CONTROL
     Route: 015
     Dates: start: 20120920, end: 20121005

REACTIONS (1)
  - Pulmonary embolism [None]
